FAERS Safety Report 7786694-1 (Version None)
Quarter: 2011Q3

REPORT INFORMATION
  Report Type: 
  Country: None (occurrence: None)
  Receive Date: 20110929
  Receipt Date: 20110926
  Transmission Date: 20111222
  Serious: Yes (Other)
  Sender: FDA-Public Use
  Company Number: JP-PFIZER INC-2011158795

PATIENT
  Age: 72 Year
  Sex: Male
  Weight: 58 kg

DRUGS (4)
  1. LYRICA [Suspect]
     Dosage: 75 MG, 2X/DAY
     Route: 048
     Dates: start: 20110809
  2. LYRICA [Suspect]
     Dosage: 125 MG/DAY (75 MG IN MORNING; 50 MG IN EVENING)
     Route: 048
     Dates: start: 20110712, end: 20110101
  3. LYRICA [Suspect]
     Indication: NEURALGIA
     Dosage: 150 MG/DAY
     Dates: start: 20100907
  4. LYRICA [Suspect]
     Dosage: 150 MG/DAY
     Route: 048
     Dates: start: 20110101, end: 20110711

REACTIONS (2)
  - POLYARTHRITIS [None]
  - URINARY INCONTINENCE [None]
